FAERS Safety Report 4952726-9 (Version None)
Quarter: 2006Q1

REPORT INFORMATION
  Report Type: 
  Country: None (occurrence: None)
  Receive Date: 20060324
  Receipt Date: 20060314
  Transmission Date: 20060701
  Serious: Yes (Other)
  Sender: FDA-Public Use
  Company Number: 2006UW04297

PATIENT
  Age: 88 Year
  Sex: Female

DRUGS (5)
  1. ZESTRIL [Suspect]
     Route: 048
  2. PLAVIX [Concomitant]
  3. HYDROCHLOROTHIAZIDE [Concomitant]
  4. PROTONIX [Concomitant]
  5. ASPIRIN [Concomitant]

REACTIONS (1)
  - APLASTIC ANAEMIA [None]
